FAERS Safety Report 5756339-0 (Version None)
Quarter: 2008Q2

REPORT INFORMATION
  Report Type: 
  Country: None (occurrence: None)
  Receive Date: 20080528
  Receipt Date: 20080528
  Transmission Date: 20081010
  Serious: Yes (Disabling)
  Sender: FDA-Public Use
  Company Number: None

PATIENT
  Age: 25 Year
  Sex: Male
  Weight: 72 kg

DRUGS (6)
  1. SEROQUEL [Suspect]
     Indication: SCHIZOPHRENIA, PARANOID TYPE
     Dosage: 100MG TWICE DAILY PO
     Route: 048
  2. SEROQUEL [Suspect]
     Dosage: 200MG  BEDTIME  PO
     Route: 048
  3. LITHIUM CARBONATE [Concomitant]
  4. AMBIEN [Concomitant]
  5. ABILIFY [Concomitant]
  6. ATIVAN [Concomitant]

REACTIONS (1)
  - HYPERGLYCAEMIA [None]
